FAERS Safety Report 8836575 (Version 1)
Quarter: 2012Q4

REPORT INFORMATION
  Report Type: Spontaneous
  Country: US (occurrence: None)
  Receive Date: 20121009
  Receipt Date: 20121009
  Transmission Date: 20130627
  Serious: Yes (Other)
  Sender: FDA-Public Use
  Company Number: TPA2012A07384

PATIENT
  Sex: Female

DRUGS (6)
  1. DEXILANT [Suspect]
     Indication: ASPIRATION
     Route: 048
     Dates: start: 201103, end: 20120822
  2. DEXILANT [Suspect]
     Indication: DUODENAL EROSION
     Route: 048
     Dates: start: 201103, end: 20120822
  3. DEXILANT [Suspect]
     Indication: ASPIRATION
     Route: 048
     Dates: start: 20120823
  4. DEXILANT [Suspect]
     Indication: DUODENAL EROSION
     Route: 048
     Dates: start: 20120823
  5. ZANTAC (RANITIDINE HYDROCHLORIDE) [Concomitant]
  6. MAALOX [Concomitant]

REACTIONS (5)
  - Gastrointestinal haemorrhage [None]
  - Pneumonia [None]
  - Pulmonary mass [None]
  - Haemoglobin decreased [None]
  - Overdose [None]
